FAERS Safety Report 7439230-3 (Version None)
Quarter: 2011Q2

REPORT INFORMATION
  Report Type: 
  Country: None (occurrence: None)
  Receive Date: 20110421
  Receipt Date: 20110421
  Transmission Date: 20111010
  Serious: Yes (Life-Threatening, Hospitalization)
  Sender: FDA-Public Use
  Company Number: None

PATIENT
  Age: 49 Year
  Sex: Female
  Weight: 99.3377 kg

DRUGS (2)
  1. HERCEPTIN [Suspect]
  2. PACLITAXEL [Suspect]

REACTIONS (1)
  - FEBRILE NEUTROPENIA [None]
